FAERS Safety Report 8116415-4 (Version None)
Quarter: 2012Q1

REPORT INFORMATION
  Report Type: 
  Country: None (occurrence: None)
  Receive Date: 20120206
  Receipt Date: 20120126
  Transmission Date: 20120608
  Serious: Yes (Other)
  Sender: FDA-Public Use
  Company Number: US-TEVA-2011005873

PATIENT
  Sex: Female
  Weight: 74.91 kg

DRUGS (7)
  1. NUVIGIL [Suspect]
     Dosage: 150 MILLIGRAM;
     Route: 048
  2. NUVIGIL [Suspect]
     Indication: SLEEP APNOEA SYNDROME
     Dosage: 150 MILLIGRAM;
     Route: 048
     Dates: start: 20111001, end: 20111108
  3. ATENOLOL [Concomitant]
     Indication: HEART RATE INCREASED
     Dosage: 25 MILLIGRAM;
     Route: 048
     Dates: start: 20090101
  4. BUPROPION HYDROCHLORIDE [Concomitant]
     Indication: DEPRESSION
     Dosage: 300 MILLIGRAM;
     Route: 048
     Dates: start: 20050101
  5. VENLAFAXINE [Concomitant]
     Indication: DEPRESSION
     Dosage: 300 MILLIGRAM;
     Route: 048
     Dates: start: 20070101
  6. CLONAZEPAM [Concomitant]
     Indication: ANXIETY
     Dosage: 4 MILLIGRAM;
     Route: 048
  7. ROPINIROLE HYDROCHLORIDE [Concomitant]
     Indication: RESTLESS LEGS SYNDROME
     Dosage: .5 MILLIGRAM;
     Route: 048
     Dates: start: 20100101

REACTIONS (4)
  - INTENTIONAL DRUG MISUSE [None]
  - APHASIA [None]
  - AMNESIA [None]
  - DRUG INEFFECTIVE [None]
